FAERS Safety Report 14866682 (Version 1)
Quarter: 2018Q2

REPORT INFORMATION
  Report Type: Spontaneous
  Country: US (occurrence: US)
  Receive Date: 20180508
  Receipt Date: 20180508
  Transmission Date: 20180711
  Serious: No
  Sender: FDA-Public Use
  Company Number: US-ALKERMES INC.-ALK-2018-000194

PATIENT
  Age: 47 Year
  Sex: Female

DRUGS (2)
  1. LITHIUM. [Suspect]
     Active Substance: LITHIUM
     Indication: PRODUCT USED FOR UNKNOWN INDICATION
  2. VIVITROL [Suspect]
     Active Substance: NALTREXONE
     Indication: ALCOHOLISM
     Dosage: 380 MG, QMO
     Route: 030
     Dates: start: 20171127

REACTIONS (10)
  - Gait disturbance [Unknown]
  - Tremor [Unknown]
  - Fatigue [Unknown]
  - Toxicity to various agents [Unknown]
  - Asthenia [Not Recovered/Not Resolved]
  - Lethargy [Unknown]
  - Daydreaming [Not Recovered/Not Resolved]
  - Underdose [Not Recovered/Not Resolved]
  - Drug administration error [Recovered/Resolved]
  - Headache [Unknown]

NARRATIVE: CASE EVENT DATE: 2017
